FAERS Safety Report 8408430 (Version 7)
Quarter: 2014Q1

REPORT INFORMATION
  Report Type: Report from Study
  Country: US (occurrence: US)
  Receive Date: 20120216
  Receipt Date: 20140312
  Transmission Date: 20141002
  Serious: Yes (Hospitalization)
  Sender: FDA-Public Use
  Company Number: US-JNJFOC-20120204765

PATIENT
  Age: 43 Year
  Sex: Male
  Weight: 114.76 kg

DRUGS (1)
  1. STELARA [Suspect]
     Indication: PSORIASIS
     Route: 058
     Dates: start: 20110722, end: 20131220

REACTIONS (2)
  - Intestinal perforation [Recovered/Resolved]
  - Pneumonia [Recovered/Resolved]
